FAERS Safety Report 10171588 (Version 1)
Quarter: 2014Q2

REPORT INFORMATION
  Report Type: Spontaneous
  Country: US (occurrence: None)
  Receive Date: 20140513
  Receipt Date: 20140513
  Transmission Date: 20141212
  Serious: Yes (Hospitalization)
  Sender: FDA-Public Use
  Company Number: None

PATIENT
  Age: 71 Year
  Sex: Male
  Weight: 82 kg

DRUGS (4)
  1. ALEMTUZUMAB (CAMPATH) [Suspect]
  2. CYCLOPHOSPHAMIDE [Suspect]
  3. PENTOSTATIN [Suspect]
  4. RITUXIMAB [Suspect]

REACTIONS (5)
  - Pancytopenia [None]
  - Pyrexia [None]
  - Pneumonia [None]
  - Therapy responder [None]
  - Neutrophil count decreased [None]
